FAERS Safety Report 15854775 (Version 1)
Quarter: 2019Q1

REPORT INFORMATION
  Report Type: Spontaneous
  Country: CA (occurrence: CA)
  Receive Date: 20190122
  Receipt Date: 20190122
  Transmission Date: 20190417
  Serious: Yes (Other)
  Sender: FDA-Public Use
  Company Number: CA-PFIZER INC-2018446836

PATIENT
  Age: 49 Year
  Sex: Female

DRUGS (2)
  1. XELJANZ [Suspect]
     Active Substance: TOFACITINIB CITRATE
     Indication: RHEUMATOID ARTHRITIS
     Dosage: 5 MG, 2X/DAY (BID)
     Route: 048
     Dates: start: 20181019
  2. METHOTREXATE. [Concomitant]
     Active Substance: METHOTREXATE
     Dosage: UNK UNK, WEEKLY

REACTIONS (8)
  - Diarrhoea [Recovered/Resolved]
  - Drug effect incomplete [Unknown]
  - Drug ineffective [Unknown]
  - Product dose omission [Unknown]
  - Neuropathy peripheral [Unknown]
  - Flushing [Unknown]
  - Fatigue [Unknown]
  - Vertigo [Unknown]

NARRATIVE: CASE EVENT DATE: 2018
